FAERS Safety Report 11493557 (Version 1)
Quarter: 2015Q3

REPORT INFORMATION
  Report Type: Spontaneous
  Country: US (occurrence: US)
  Receive Date: 20150911
  Receipt Date: 20150911
  Transmission Date: 20151125
  Serious: Yes (Hospitalization)
  Sender: FDA-Public Use
  Company Number: US-TARO PHARMACEUTICALS USA.,INC-2015SUN01946

PATIENT
  Age: 24 Year
  Sex: Male

DRUGS (18)
  1. LEVETIRACETAM. [Suspect]
     Active Substance: LEVETIRACETAM
     Indication: SEIZURE
     Dosage: 1000 MG, BID
     Route: 065
  2. VENLAFAXINE [Concomitant]
     Active Substance: VENLAFAXINE HYDROCHLORIDE
  3. DOXAZOSIN [Concomitant]
     Active Substance: DOXAZOSIN\DOXAZOSIN MESYLATE
  4. ENOXAPARIN [Concomitant]
     Active Substance: ENOXAPARIN
     Indication: PROPHYLAXIS
  5. FLUCONAZOLE. [Concomitant]
     Active Substance: FLUCONAZOLE
  6. LUBIPROSTONE [Concomitant]
     Active Substance: LUBIPROSTONE
  7. OMEPRAZOLE. [Concomitant]
     Active Substance: OMEPRAZOLE
  8. DIAZEPAM. [Concomitant]
     Active Substance: DIAZEPAM
  9. METHENAMINE [Concomitant]
     Active Substance: METHENAMINE
  10. CEFTRIAXONE. [Concomitant]
     Active Substance: CEFTRIAXONE
  11. CLONIDINE. [Concomitant]
     Active Substance: CLONIDINE
  12. ERTAPENEM [Concomitant]
     Active Substance: ERTAPENEM
  13. GENTAMICIN. [Concomitant]
     Active Substance: GENTAMICIN
  14. VANCOMYCIN [Concomitant]
     Active Substance: VANCOMYCIN
  15. LEVETIRACETAM. [Suspect]
     Active Substance: LEVETIRACETAM
     Indication: ENCEPHALOPATHY
     Dosage: 2000 MG LOADING DOSE
     Route: 065
  16. METFORMIN [Concomitant]
     Active Substance: METFORMIN HYDROCHLORIDE
  17. ACYCLOVIR. [Concomitant]
     Active Substance: ACYCLOVIR
  18. BACLOFEN. [Concomitant]
     Active Substance: BACLOFEN

REACTIONS (2)
  - Pyrexia [Recovered/Resolved]
  - Eosinophilia [Recovered/Resolved]
